FAERS Safety Report 20536909 (Version 1)
Quarter: 2022Q1

REPORT INFORMATION
  Report Type: Report from Study
  Country: ES (occurrence: ES)
  Receive Date: 20220302
  Receipt Date: 20220302
  Transmission Date: 20220423
  Serious: Yes (Other)
  Sender: FDA-Public Use
  Company Number: ES-NOVARTISPH-NVSC2022ES046137

PATIENT
  Age: 80 Year
  Sex: Female

DRUGS (1)
  1. CAPMATINIB [Suspect]
     Active Substance: CAPMATINIB
     Indication: Lung adenocarcinoma
     Dosage: UNK
     Route: 065

REACTIONS (6)
  - Lymphoedema [Unknown]
  - Oedema [Unknown]
  - Hyponatraemia [Unknown]
  - Oedema peripheral [Unknown]
  - Lung adenocarcinoma [Unknown]
  - Malignant neoplasm progression [Unknown]
